FAERS Safety Report 24958663 (Version 2)
Quarter: 2025Q3

REPORT INFORMATION
  Report Type: Report from Study
  Country: US (occurrence: US)
  Receive Date: 20250212
  Receipt Date: 20250803
  Transmission Date: 20251020
  Serious: Yes (Hospitalization, Other)
  Sender: ALEXION PHARMACEUTICALS
  Company Number: US-AstraZeneca-CH-00802144AP

PATIENT
  Sex: Male

DRUGS (1)
  1. BUDESONIDE\FORMOTEROL\GLYCOPYRRONIUM [Suspect]
     Active Substance: BUDESONIDE\FORMOTEROL\GLYCOPYRRONIUM
     Route: 065

REACTIONS (7)
  - Myocardial infarction [Unknown]
  - Pneumonia [Unknown]
  - Illness [Unknown]
  - Lung disorder [Unknown]
  - Device delivery system issue [Unknown]
  - General physical condition abnormal [Unknown]
  - Neuralgia [Unknown]
